FAERS Safety Report 7997506-5 (Version None)
Quarter: 2011Q4

REPORT INFORMATION
  Report Type: 
  Country: None (occurrence: None)
  Receive Date: 20111221
  Receipt Date: 20111221
  Transmission Date: 20120403
  Serious: No
  Sender: FDA-Public Use
  Company Number: None

PATIENT
  Age: 26 Year
  Sex: Female
  Weight: 54.884 kg

DRUGS (1)
  1. JUNEL FE 1.5/30 [Suspect]
     Indication: MENSTRUATION IRREGULAR
     Dates: start: 20110711, end: 20111225

REACTIONS (7)
  - IRRITABILITY [None]
  - ANGER [None]
  - DEPRESSION [None]
  - METRORRHAGIA [None]
  - DYSMENORRHOEA [None]
  - WEIGHT INCREASED [None]
  - MIGRAINE [None]
